FAERS Safety Report 20149092 (Version 2)
Quarter: 2022Q1

REPORT INFORMATION
  Report Type: Spontaneous
  Country: US (occurrence: US)
  Receive Date: 20211205
  Receipt Date: 20220225
  Transmission Date: 20220423
  Serious: No
  Sender: FDA-Public Use
  Company Number: US-JNJFOC-20211139260

PATIENT
  Age: 67 Year

DRUGS (9)
  1. TYLENOL [Suspect]
     Active Substance: ACETAMINOPHEN
     Indication: Headache
     Route: 065
     Dates: start: 202008
  2. TYLENOL [Suspect]
     Active Substance: ACETAMINOPHEN
     Indication: Myalgia
  3. TYLENOL [Suspect]
     Active Substance: ACETAMINOPHEN
     Indication: Pyrexia
  4. COVID-19 VACCINE [Concomitant]
     Indication: Immunisation
     Dosage: 1ST DOSE
     Route: 065
     Dates: start: 20200806
  5. COVID-19 VACCINE [Concomitant]
     Dosage: 2ND DOSE
     Route: 065
     Dates: start: 20200827
  6. COVID-19 VACCINE [Concomitant]
     Route: 065
     Dates: start: 20210527
  7. MOTRIN [Concomitant]
     Active Substance: IBUPROFEN
     Indication: Pyrexia
     Route: 065
     Dates: start: 202008
  8. MOTRIN [Concomitant]
     Active Substance: IBUPROFEN
     Indication: Headache
  9. MOTRIN [Concomitant]
     Active Substance: IBUPROFEN
     Indication: Myalgia

REACTIONS (1)
  - Drug ineffective [Unknown]

NARRATIVE: CASE EVENT DATE: 20200801
